FAERS Safety Report 5293867-9 (Version None)
Quarter: 2007Q2

REPORT INFORMATION
  Report Type: 
  Country: None (occurrence: None)
  Receive Date: 20070411
  Receipt Date: 20070330
  Transmission Date: 20071010
  Serious: Yes (Disabling, Other)
  Sender: FDA-Public Use
  Company Number: FR-PFIZER INC-2007007308

PATIENT
  Sex: Female
  Weight: 99 kg

DRUGS (2)
  1. ZITHROMAX [Suspect]
     Indication: PHARYNGOLARYNGEAL PAIN
     Route: 048
  2. ZITHROMAX [Suspect]
     Indication: SINUSITIS

REACTIONS (4)
  - ACCOMMODATION DISORDER [None]
  - ASTHENOPIA [None]
  - DRUG INEFFECTIVE [None]
  - VISION BLURRED [None]
